FAERS Safety Report 5816588-X (Version None)
Quarter: 2008Q3

REPORT INFORMATION
  Report Type: 
  Country: None (occurrence: None)
  Receive Date: 20080721
  Receipt Date: 20080710
  Transmission Date: 20090109
  Serious: No
  Sender: FDA-Public Use
  Company Number: AR-ROCHE-575221

PATIENT
  Sex: Female

DRUGS (3)
  1. ROACCUTAN [Suspect]
     Indication: ACNE
     Route: 048
     Dates: start: 20061201, end: 20071201
  2. ROACCUTAN [Suspect]
     Route: 048
     Dates: start: 20080301, end: 20080301
  3. ROACCUTAN [Suspect]
     Route: 048
     Dates: start: 20080615, end: 20080615

REACTIONS (2)
  - NO ADVERSE EVENT [None]
  - PREGNANCY [None]
